FAERS Safety Report 24667127 (Version 1)
Quarter: 2024Q4

REPORT INFORMATION
  Report Type: Spontaneous
  Country: US (occurrence: US)
  Receive Date: 20241126
  Receipt Date: 20241126
  Transmission Date: 20250115
  Serious: No
  Sender: MERCK
  Company Number: US-009507513-2411USA009881

PATIENT
  Sex: Female
  Weight: 60.8 kg

DRUGS (18)
  1. WINREVAIR [Suspect]
     Active Substance: SOTATERCEPT-CSRK
     Indication: Product used for unknown indication
     Dosage: UNK
     Dates: start: 2024
  2. TYVASO [Suspect]
     Active Substance: TREPROSTINIL
     Indication: Pulmonary arterial hypertension
     Dosage: 64 MICROGRAM, QID
     Dates: start: 20240628
  3. TYLENOL [Concomitant]
     Active Substance: ACETAMINOPHEN
  4. SODIUM CHLORIDE [Concomitant]
     Active Substance: SODIUM CHLORIDE
  5. ROSUVASTATIN CALCIUM [Concomitant]
     Active Substance: ROSUVASTATIN CALCIUM
  6. OPSUMIT [Concomitant]
     Active Substance: MACITENTAN
  7. SILDENAFIL CITRATE [Concomitant]
     Active Substance: SILDENAFIL CITRATE
  8. ALENDRONATE SODIUM [Concomitant]
     Active Substance: ALENDRONATE SODIUM
  9. CLARITIN [Concomitant]
     Active Substance: LORATADINE
  10. OXYGEN [Concomitant]
     Active Substance: OXYGEN
  11. GAS-X [Concomitant]
     Active Substance: DIMETHICONE
  12. LEVOTHYROXINE [Concomitant]
     Active Substance: LEVOTHYROXINE
  13. CARVEDILOL [Concomitant]
     Active Substance: CARVEDILOL
  14. FUROSEMIDE [Concomitant]
     Active Substance: FUROSEMIDE
  15. MUCINEX [Concomitant]
     Active Substance: GUAIFENESIN
  16. LOSARTAN POTASSIUM [Concomitant]
     Active Substance: LOSARTAN POTASSIUM
  17. ASPIRIN [Concomitant]
     Active Substance: ASPIRIN
  18. MULTAQ [Concomitant]
     Active Substance: DRONEDARONE

REACTIONS (2)
  - Heart rate increased [Unknown]
  - Blood pressure increased [Unknown]

NARRATIVE: CASE EVENT DATE: 20240101
